FAERS Safety Report 6383704-3 (Version None)
Quarter: 2009Q4

REPORT INFORMATION
  Report Type: 
  Country: None (occurrence: None)
  Receive Date: 20091001
  Receipt Date: 20090916
  Transmission Date: 20100525
  Serious: Yes (Hospitalization)
  Sender: FDA-Public Use
  Company Number: IT-PFIZER INC-2007020753

PATIENT
  Age: 13 Year

DRUGS (5)
  1. GENOTROPIN [Suspect]
     Indication: HYPOPITUITARISM
     Dosage: 1.8 MG, 1X/DAY
     Route: 058
     Dates: start: 19981201, end: 20070221
  2. ETHINYLESTRADIOL [Concomitant]
     Dosage: 0.012 MG, UNK
     Route: 048
  3. EUTIROX [Concomitant]
     Route: 048
     Dates: start: 19981201
  4. HYDROCORTISONE [Concomitant]
     Route: 048
  5. MINIRIN/DDAVP [Concomitant]
     Route: 055

REACTIONS (2)
  - ABDOMINAL PAIN [None]
  - PANCREATITIS ACUTE [None]
